FAERS Safety Report 9808516 (Version 4)
Quarter: 2014Q2

REPORT INFORMATION
  Report Type: Spontaneous
  Country: US (occurrence: US)
  Receive Date: 20140110
  Receipt Date: 20140513
  Transmission Date: 20141212
  Serious: Yes (Disabling)
  Sender: FDA-Public Use
  Company Number: US-009507513-1103USA03608

PATIENT
  Sex: Male

DRUGS (3)
  1. PROPECIA [Suspect]
     Indication: ALOPECIA
     Dosage: 1 MG, QD
     Route: 048
     Dates: start: 20080606, end: 201011
  2. PROPECIA [Suspect]
     Indication: ALOPECIA
  3. AMPICILLIN [Concomitant]
     Indication: ACNE
     Dosage: UNK
     Dates: start: 2003

REACTIONS (3)
  - Male sexual dysfunction [Not Recovered/Not Resolved]
  - Anxiety [Not Recovered/Not Resolved]
  - Erectile dysfunction [Unknown]
